FAERS Safety Report 5820996-0 (Version None)
Quarter: 2008Q3

REPORT INFORMATION
  Report Type: 
  Country: None (occurrence: None)
  Receive Date: 20080724
  Receipt Date: 20080716
  Transmission Date: 20090109
  Serious: Yes (Hospitalization)
  Sender: FDA-Public Use
  Company Number: US-BAXTER-2008BH007497

PATIENT

DRUGS (5)
  1. GAMMAGARD S/D [Suspect]
     Indication: DRUG USE FOR UNKNOWN INDICATION
     Route: 042
     Dates: start: 20080401
  2. GAMMAGARD S/D [Suspect]
     Route: 042
     Dates: start: 20080301
  3. GAMMAGARD S/D [Suspect]
     Route: 042
     Dates: start: 20080201
  4. BENADRYL [Concomitant]
     Indication: PREMEDICATION
     Dosage: DOSE UNIT:UNKNOWN
     Route: 065
  5. TYLENOL [Concomitant]
     Indication: PREMEDICATION
     Dosage: DOSE UNIT:UNKNOWN
     Route: 065

REACTIONS (2)
  - HEADACHE [None]
  - HYPERTENSION [None]
